FAERS Safety Report 5825905-6 (Version None)
Quarter: 2008Q3

REPORT INFORMATION
  Report Type: 
  Country: None (occurrence: None)
  Receive Date: 20080729
  Receipt Date: 20080722
  Transmission Date: 20090109
  Serious: Yes (Hospitalization)
  Sender: FDA-Public Use
  Company Number: FR-AVENTIS-200812239FR

PATIENT
  Age: 82 Year
  Sex: Male

DRUGS (5)
  1. FLAGYL [Suspect]
     Dates: start: 20080323, end: 20080404
  2. PRIMPERAN                          /00041901/ [Suspect]
     Dates: start: 20080401, end: 20080404
  3. AUGMENTIN '125' [Suspect]
     Dates: start: 20080323, end: 20080404
  4. AMIKLIN                            /00391001/ [Concomitant]
  5. IZILOX [Concomitant]

REACTIONS (1)
  - PANCYTOPENIA [None]
